FAERS Safety Report 7475939-3 (Version None)
Quarter: 2011Q2

REPORT INFORMATION
  Report Type: 
  Country: None (occurrence: None)
  Receive Date: 20110504
  Receipt Date: 20110419
  Transmission Date: 20111010
  Serious: Yes (Other)
  Sender: FDA-Public Use
  Company Number: 1000020523

PATIENT
  Age: 64 Year
  Sex: Male

DRUGS (5)
  1. DIAZEPAM [Concomitant]
  2. VENLAFAXINE HCL [Concomitant]
  3. AMITRIPTYLINE (AMITRIPTYLINE) (AMITRIPTYLINE) [Concomitant]
  4. LEVOTHYROXINE (LEVOTHYROXINE SODIUM) (LEVOTHYROXINE SODIUM) [Concomitant]
  5. CITALOPRAM HYDROBROMIDE [Suspect]
     Dosage: ORAL
     Route: 048
     Dates: end: 20110321

REACTIONS (1)
  - MYOPATHY [None]
